FAERS Safety Report 21374825 (Version 1)
Quarter: 2022Q3

REPORT INFORMATION
  Report Type: Spontaneous
  Country: US (occurrence: US)
  Receive Date: 20220926
  Receipt Date: 20220926
  Transmission Date: 20221026
  Serious: No
  Sender: FDA-Public Use
  Company Number: US-ALLERGAN-2225972US

PATIENT
  Sex: Female

DRUGS (2)
  1. LEXAPRO [Suspect]
     Active Substance: ESCITALOPRAM OXALATE
     Indication: Product used for unknown indication
     Dosage: UNK
  2. QUESTRAN [Concomitant]
     Active Substance: CHOLESTYRAMINE

REACTIONS (8)
  - Eye oedema [Unknown]
  - Eye irritation [Unknown]
  - Irritable bowel syndrome [Unknown]
  - Anal fissure [Unknown]
  - Diarrhoea [Unknown]
  - Gastrointestinal disorder [Unknown]
  - Dermatitis [Recovered/Resolved]
  - Rectal haemorrhage [Unknown]
